FAERS Safety Report 9335282 (Version 1)
Quarter: 2013Q2

REPORT INFORMATION
  Report Type: Spontaneous
  Country: US (occurrence: US)
  Receive Date: 20130606
  Receipt Date: 20130606
  Transmission Date: 20140414
  Serious: Yes (Other)
  Sender: FDA-Public Use
  Company Number: US-TEVA-410558USA

PATIENT
  Sex: 0

DRUGS (1)
  1. MERCAPTOPURINE [Suspect]
     Indication: CROHN^S DISEASE

REACTIONS (3)
  - Toxicity to various agents [Not Recovered/Not Resolved]
  - Hepatic enzyme abnormal [Not Recovered/Not Resolved]
  - Off label use [Unknown]
